FAERS Safety Report 6688550-9 (Version None)
Quarter: 2010Q2

REPORT INFORMATION
  Report Type: 
  Country: None (occurrence: None)
  Receive Date: 20100420
  Receipt Date: 20100414
  Transmission Date: 20101027
  Serious: Yes (Hospitalization, Other)
  Sender: FDA-Public Use
  Company Number: US-MERCK-0805USA00918

PATIENT
  Age: 79 Year
  Sex: Female
  Weight: 64 kg

DRUGS (8)
  1. FOSAMAX [Suspect]
     Indication: OSTEOPOROSIS
     Route: 048
     Dates: start: 20030401, end: 20040901
  2. FOSAMAX [Suspect]
     Route: 048
     Dates: start: 20060801, end: 20061101
  3. HYDROXYUREA [Concomitant]
     Indication: PLATELET DISORDER
     Route: 065
     Dates: start: 20030101
  4. NORVASC [Concomitant]
     Indication: HYPERTENSION
     Route: 065
     Dates: start: 20030101
  5. SYNTHROID [Concomitant]
     Indication: THYROID DISORDER
     Route: 065
     Dates: start: 20030101
  6. ASPIRIN [Concomitant]
     Route: 065
  7. ACTONEL [Suspect]
     Indication: OSTEOPOROSIS
     Route: 048
     Dates: start: 20000801, end: 20030101
  8. ATENOLOL [Concomitant]
     Indication: BLOOD PRESSURE
     Route: 065
     Dates: start: 20030101

REACTIONS (26)
  - ANAEMIA [None]
  - ARTHRALGIA [None]
  - ATRIAL FIBRILLATION [None]
  - BACK PAIN [None]
  - BLOOD CHOLESTEROL INCREASED [None]
  - BONE DENSITY DECREASED [None]
  - CEREBROVASCULAR ACCIDENT [None]
  - CEREBROVASCULAR DISORDER [None]
  - EXOSTOSIS [None]
  - HEART RATE IRREGULAR [None]
  - IMPAIRED HEALING [None]
  - IRON DEFICIENCY ANAEMIA [None]
  - MASTICATION DISORDER [None]
  - MOUTH ULCERATION [None]
  - OEDEMA PERIPHERAL [None]
  - ORAL DISORDER [None]
  - OSTEITIS DEFORMANS [None]
  - OSTEOARTHRITIS [None]
  - OSTEONECROSIS [None]
  - PAIN [None]
  - PAIN IN JAW [None]
  - PERIODONTAL DISEASE [None]
  - SQUAMOUS CELL CARCINOMA [None]
  - TOOTH INFECTION [None]
  - UTERINE HAEMORRHAGE [None]
  - VIRAL INFECTION [None]
